FAERS Safety Report 5045828-2 (Version None)
Quarter: 2006Q2

REPORT INFORMATION
  Report Type: 
  Country: None (occurrence: None)
  Receive Date: 20060629
  Receipt Date: 20060616
  Transmission Date: 20061013
  Serious: Yes (Other)
  Sender: FDA-Public Use
  Company Number: 2006080199

PATIENT
  Age: 61 Year
  Sex: Male
  Weight: 94.8018 kg

DRUGS (11)
  1. LYRICA [Suspect]
     Indication: NEUROPATHY PERIPHERAL
     Dosage: 50 MG (50 MG, 1 IN 1 D), ORAL
     Route: 048
     Dates: start: 20060502
  2. WARFARIN SODIUM [Concomitant]
  3. ALLOPURINOL [Concomitant]
  4. MORPHINE SULFATE [Concomitant]
  5. VICODIN HP (HYDROCODONE BITARTRATE, PARACETAMOL) [Concomitant]
  6. CARDURA [Concomitant]
  7. XANAX [Concomitant]
  8. HALCION [Concomitant]
  9. ALLEGRA [Concomitant]
  10. POLYETHYLENE GLYCOL [Concomitant]
  11. ANTIBIOTICS (ANTIBIOTICS) [Concomitant]

REACTIONS (7)
  - DRUG INEFFECTIVE [None]
  - HYPERSOMNIA [None]
  - INADEQUATE ANALGESIA [None]
  - INTERNATIONAL NORMALISED RATIO INCREASED [None]
  - NERVOUS SYSTEM DISORDER [None]
  - PROTHROMBIN TIME PROLONGED [None]
  - SOMNOLENCE [None]
